FAERS Safety Report 6298233-5 (Version None)
Quarter: 2009Q3

REPORT INFORMATION
  Report Type: 
  Country: None (occurrence: None)
  Receive Date: 20090805
  Receipt Date: 20090724
  Transmission Date: 20100115
  Serious: Yes (Hospitalization)
  Sender: FDA-Public Use
  Company Number: AU-PFIZER INC-2009238518

PATIENT
  Age: 68 Year

DRUGS (5)
  1. SUTENT [Suspect]
     Indication: SARCOMA
     Dosage: 50 MG, 1X/DAY
     Route: 048
     Dates: start: 20090615, end: 20090628
  2. SUTENT [Suspect]
     Dosage: 25 MG, 1X/DAY
     Route: 048
     Dates: start: 20090629, end: 20090708
  3. LORAZEPAM [Concomitant]
     Dosage: UNK
     Route: 048
     Dates: start: 20090501
  4. ACETAMINOPHEN W/ CODEINE [Concomitant]
     Dosage: UNK
     Route: 048
     Dates: start: 20090501
  5. ACETAMINOPHEN [Concomitant]
     Dosage: UNK
     Route: 048
     Dates: start: 20090501

REACTIONS (1)
  - CHOLECYSTITIS [None]
